FAERS Safety Report 13306280 (Version 2)
Quarter: 2018Q1

REPORT INFORMATION
  Report Type: Spontaneous
  Country: US (occurrence: US)
  Receive Date: 20170308
  Receipt Date: 20180206
  Transmission Date: 20180508
  Serious: No
  Sender: FDA-Public Use
  Company Number: US-BAYER-2017-044983

PATIENT
  Age: 14 Year
  Sex: Male

DRUGS (1)
  1. KOGENATE FS [Suspect]
     Active Substance: ANTIHEMOPHILIC FACTOR, HUMAN RECOMBINANT
     Indication: HAEMORRHAGE
     Dosage: 2000 U MW AND DAILY PRN BLEED. INFUSE 2500 U FRIDAY
     Route: 042
     Dates: start: 20120706

REACTIONS (2)
  - Gingival bleeding [None]
  - Product availability issue [None]

NARRATIVE: CASE EVENT DATE: 20170220
